FAERS Safety Report 15628631 (Version 5)
Quarter: 2020Q1

REPORT INFORMATION
  Report Type: Report from Study
  Country: US (occurrence: US)
  Receive Date: 20181116
  Receipt Date: 20200312
  Transmission Date: 20200409
  Serious: Yes (Other)
  Sender: FDA-Public Use
  Company Number: PHEH2018US048098

PATIENT
  Sex: Female

DRUGS (1)
  1. GILENYA [Suspect]
     Active Substance: FINGOLIMOD HYDROCHLORIDE
     Indication: MULTIPLE SCLEROSIS
     Dosage: 0.5 MG, QD
     Route: 048
     Dates: start: 20180727

REACTIONS (9)
  - Pulmonary congestion [Recovered/Resolved]
  - Chills [Recovered/Resolved]
  - Blood alkaline phosphatase increased [Unknown]
  - Nasopharyngitis [Recovered/Resolved]
  - Dysstasia [Unknown]
  - Muscle spasms [Unknown]
  - Intervertebral disc degeneration [Unknown]
  - Back pain [Unknown]
  - Headache [Recovered/Resolved]
